FAERS Safety Report 14308697 (Version 3)
Quarter: 2022Q1

REPORT INFORMATION
  Report Type: Spontaneous
  Country: FR (occurrence: FR)
  Receive Date: 20171220
  Receipt Date: 20220222
  Transmission Date: 20220424
  Serious: Yes (Hospitalization, Other)
  Sender: FDA-Public Use
  Company Number: FR-EMA-20170726-PSEVHUMANWTDD-102642198

PATIENT
  Age: 61 Year
  Sex: Female

DRUGS (9)
  1. AMOXICILLIN [Suspect]
     Active Substance: AMOXICILLIN
     Indication: Helicobacter infection
     Dosage: 1 GRAM, TWO TIMES A DAY
     Route: 065
     Dates: start: 201206, end: 2012
  2. AMOXICILLIN [Suspect]
     Active Substance: AMOXICILLIN
     Indication: Peptic ulcer helicobacter
     Dosage: 1 GRAM, ONCE A DAY
     Route: 065
     Dates: start: 201206
  3. AMOXICILLIN [Suspect]
     Active Substance: AMOXICILLIN
     Indication: Peptic ulcer
  4. CLARITHROMYCIN [Suspect]
     Active Substance: CLARITHROMYCIN
     Indication: Helicobacter infection
     Dosage: 500 MILLIGRAM, ONCE A DAY
     Route: 065
     Dates: start: 201206
  5. CLARITHROMYCIN [Suspect]
     Active Substance: CLARITHROMYCIN
     Indication: Peptic ulcer
     Dosage: 1000 MILLIGRAM, ONCE A DAY
     Route: 065
     Dates: start: 201206, end: 2012
  6. METRONIDAZOLE [Suspect]
     Active Substance: METRONIDAZOLE
     Indication: Helicobacter infection
     Dosage: 500 MILLIGRAM, ONCE A DAY
     Route: 065
     Dates: start: 201206, end: 2012
  7. METRONIDAZOLE [Suspect]
     Active Substance: METRONIDAZOLE
     Indication: Peptic ulcer
     Dosage: 1500 MILLIGRAM, ONCE A DAY
     Route: 065
     Dates: start: 201206
  8. OMEPRAZOLE [Concomitant]
     Active Substance: OMEPRAZOLE
     Indication: Helicobacter infection
     Dosage: 20 MILLIGRAM, TWO TIMES A DAY
     Route: 065
  9. OMEPRAZOLE [Concomitant]
     Active Substance: OMEPRAZOLE
     Dosage: 20 MILLIGRAM, ONCE A DAY
     Route: 065

REACTIONS (15)
  - Mania [Recovered/Resolved]
  - Bipolar disorder [Recovered/Resolved]
  - Belligerence [Recovered/Resolved]
  - Irritability [Recovered/Resolved]
  - Persecutory delusion [Recovered/Resolved]
  - Logorrhoea [Recovered/Resolved]
  - Aggression [Recovered/Resolved]
  - Insomnia [Recovered/Resolved]
  - Psychomotor hyperactivity [Recovered/Resolved]
  - Bradyphrenia [Recovered/Resolved]
  - Agitation [Recovered/Resolved]
  - Disinhibition [Recovered/Resolved]
  - Delusion [Recovered/Resolved]
  - Cyclothymic disorder [Recovered/Resolved]
  - Product use in unapproved indication [Unknown]

NARRATIVE: CASE EVENT DATE: 20120101
